FAERS Safety Report 21852580 (Version 1)
Quarter: 2023Q1

REPORT INFORMATION
  Report Type: Spontaneous
  Country: US (occurrence: None)
  Receive Date: 20230111
  Receipt Date: 20230111
  Transmission Date: 20230418
  Serious: Yes (Hospitalization)
  Sender: FDA-Public Use
  Company Number: None

PATIENT
  Age: 14 Year
  Sex: Female

DRUGS (1)
  1. BOSENTAN [Suspect]
     Active Substance: BOSENTAN
     Indication: Pulmonary arterial hypertension
     Dosage: 62.5 MG BID ORAL?
     Route: 048
     Dates: start: 202211

REACTIONS (3)
  - Ascites [None]
  - Oedema [None]
  - Liver function test increased [None]

NARRATIVE: CASE EVENT DATE: 20230110
